FAERS Safety Report 25341639 (Version 2)
Quarter: 2025Q2

REPORT INFORMATION
  Report Type: Spontaneous
  Country: DE (occurrence: DE)
  Receive Date: 20250521
  Receipt Date: 20250530
  Transmission Date: 20250716
  Serious: Yes (Other)
  Sender: BRISTOL-MYERS SQUIBB COMPANY
  Company Number: DE-BRISTOL-MYERS SQUIBB COMPANY-2025-072194

PATIENT
  Age: 52 Year
  Sex: Female

DRUGS (1)
  1. OPDIVO [Suspect]
     Active Substance: NIVOLUMAB
     Indication: Malignant melanoma
     Dates: start: 20190926

REACTIONS (1)
  - Metastatic malignant melanoma [Unknown]

NARRATIVE: CASE EVENT DATE: 20200601
